FAERS Safety Report 7000271-1 (Version None)
Quarter: 2010Q3

REPORT INFORMATION
  Report Type: 
  Country: None (occurrence: None)
  Receive Date: 20100920
  Receipt Date: 20070702
  Transmission Date: 20110219
  Serious: Yes (Other)
  Sender: FDA-Public Use
  Company Number: US-ASTRAZENECA-2006UW27914

PATIENT
  Age: 42 Year
  Sex: Female
  Weight: 116.1 kg

DRUGS (16)
  1. SEROQUEL [Suspect]
     Indication: PSYCHOTIC DISORDER
     Dosage: 20MG-800MG
     Route: 048
     Dates: start: 20030808
  2. SEROQUEL [Suspect]
     Indication: SLEEP DISORDER
     Dosage: 20MG-800MG
     Route: 048
     Dates: start: 20030808
  3. SEROQUEL [Suspect]
     Indication: AGITATION
     Dosage: 20MG-800MG
     Route: 048
     Dates: start: 20030808
  4. SEROQUEL [Suspect]
     Route: 048
     Dates: start: 20030901, end: 20060701
  5. SEROQUEL [Suspect]
     Route: 048
     Dates: start: 20030901, end: 20060701
  6. SEROQUEL [Suspect]
     Route: 048
     Dates: start: 20030901, end: 20060701
  7. GEODON [Concomitant]
     Dates: start: 20061101
  8. LORAZEPAM [Concomitant]
     Dosage: STRENGTH- 0.5MG, 1 MG, 2MG  DOSE- 3MG DAILY, 4 MG DAILY
     Route: 048
  9. ZYPREXA [Concomitant]
     Route: 048
  10. TRAZODONE HCL [Concomitant]
     Route: 048
  11. PROZAC [Concomitant]
     Dosage: STRENGTH- 20MG, 40MG  DOSE- 20MG-40MG DAILY
  12. LIPITOR [Concomitant]
     Dosage: STRENGTH-  10MG, 40MG  DOSE- 10MG-40MG DAILY
     Route: 048
  13. LOFIBRA [Concomitant]
     Route: 048
  14. OXYCODONE HCL AND ACETAMINOPHEN [Concomitant]
     Dosage: 5MG/325 MG
     Route: 048
  15. RANITIDINE [Concomitant]
     Route: 048
  16. METFORMIN [Concomitant]
     Dosage: STRENGTH- 850MG, 1000MG  DOSE- 1700MG-2000MG DAILY
     Route: 048

REACTIONS (9)
  - BLOOD CHOLESTEROL INCREASED [None]
  - BODY MASS INDEX INCREASED [None]
  - DIABETES MELLITUS [None]
  - DIABETES MELLITUS INADEQUATE CONTROL [None]
  - HYPERCHOLESTEROLAEMIA [None]
  - HYPERGLYCAEMIA [None]
  - OBESITY [None]
  - TYPE 2 DIABETES MELLITUS [None]
  - VISION BLURRED [None]
